FAERS Safety Report 17799421 (Version 4)
Quarter: 2021Q1

REPORT INFORMATION
  Report Type: Spontaneous
  Country: GB (occurrence: GB)
  Receive Date: 20200518
  Receipt Date: 20210222
  Transmission Date: 20210419
  Serious: Yes (Life-Threatening, Hospitalization, Disabling)
  Sender: FDA-Public Use
  Company Number: GB-OTSUKA-2020_012049

PATIENT
  Age: 74 Year
  Sex: Female

DRUGS (3)
  1. ARIPIPRAZOLE. [Suspect]
     Active Substance: ARIPIPRAZOLE
     Indication: EMOTIONAL DISTRESS
     Dosage: UNK
     Route: 065
  2. ABILIFY [Suspect]
     Active Substance: ARIPIPRAZOLE
     Indication: STRESS
  3. ABILIFY [Suspect]
     Active Substance: ARIPIPRAZOLE
     Indication: SCHIZOPHRENIA
     Dosage: 5 MG, QD
     Route: 065
     Dates: start: 2014

REACTIONS (7)
  - Product use in unapproved indication [Unknown]
  - Antisocial behaviour [Recovered/Resolved]
  - Drug withdrawal convulsions [Unknown]
  - Feeling drunk [Unknown]
  - Urine analysis abnormal [Recovered/Resolved]
  - Malaise [Unknown]
  - Dizziness [Unknown]
